FAERS Safety Report 19685703 (Version 1)
Quarter: 2021Q3

REPORT INFORMATION
  Report Type: Spontaneous
  Country: US (occurrence: US)
  Receive Date: 20210811
  Receipt Date: 20210811
  Transmission Date: 20211014
  Serious: No
  Sender: FDA-Public Use
  Company Number: None

PATIENT
  Age: 26 Year
  Weight: 87.75 kg

DRUGS (3)
  1. NASAL SPRAY, OXYMETAZOLINE HCI 0.05% [Suspect]
     Active Substance: OXYMETAZOLINE HYDROCHLORIDE
     Indication: NASAL CONGESTION
     Dosage: ?          QUANTITY:0.5 OUNCE(S);?
     Route: 055
     Dates: start: 20210810
  2. SELSUN BLUE [Concomitant]
     Active Substance: SELENIUM SULFIDE
  3. FISH OIL [Concomitant]
     Active Substance: FISH OIL

REACTIONS (1)
  - Headache [None]

NARRATIVE: CASE EVENT DATE: 20210811
